FAERS Safety Report 13753287 (Version 1)
Quarter: 2017Q3

REPORT INFORMATION
  Report Type: Report from Study
  Country: None (occurrence: US)
  Receive Date: 20170714
  Receipt Date: 20170714
  Transmission Date: 20171127
  Serious: Yes (Other)
  Sender: FDA-Public Use
  Company Number: US-IPSEN BIOPHARMACEUTICALS, INC.-2013-2043

PATIENT
  Age: 9 Year
  Sex: Male
  Weight: 22 kg

DRUGS (5)
  1. INCRELEX [Suspect]
     Active Substance: MECASERMIN
     Indication: PRODUCT USE IN UNAPPROVED INDICATION
     Route: 058
  2. INCRELEX [Suspect]
     Active Substance: MECASERMIN
     Route: 058
  3. INCRELEX [Suspect]
     Active Substance: MECASERMIN
     Indication: GROWTH FAILURE
     Route: 058
     Dates: start: 20130419
  4. INCRELEX [Suspect]
     Active Substance: MECASERMIN
     Route: 058
  5. INSULIN [Concomitant]
     Active Substance: INSULIN NOS
     Indication: TYPE 1 DIABETES MELLITUS
     Dosage: NOT REPORTED
     Route: 065

REACTIONS (1)
  - Hypoglycaemia [Recovering/Resolving]

NARRATIVE: CASE EVENT DATE: 20130419
